FAERS Safety Report 10337521 (Version 2)
Quarter: 2014Q3

REPORT INFORMATION
  Report Type: Spontaneous
  Country: US (occurrence: US)
  Receive Date: 20140724
  Receipt Date: 20140724
  Transmission Date: 20150326
  Serious: Yes (Death)
  Sender: FDA-Public Use
  Company Number: US-ROCHE-1142129

PATIENT
  Sex: Male
  Weight: 77.2 kg

DRUGS (2)
  1. AVASTIN [Suspect]
     Active Substance: BEVACIZUMAB
     Indication: LEUKAEMIA
     Route: 065
     Dates: start: 2009
  2. AVASTIN [Suspect]
     Active Substance: BEVACIZUMAB
     Route: 065
     Dates: start: 2011

REACTIONS (3)
  - Aggression [Unknown]
  - Agitation [Unknown]
  - Lung neoplasm malignant [Fatal]
